FAERS Safety Report 23889324 (Version 1)
Quarter: 2024Q2

REPORT INFORMATION
  Report Type: Spontaneous
  Country: US (occurrence: US)
  Receive Date: 20240523
  Receipt Date: 20240523
  Transmission Date: 20240716
  Serious: No
  Sender: FDA-Public Use
  Company Number: US-PFIZER INC-PV202400066997

PATIENT
  Age: 75 Year
  Sex: Female

DRUGS (1)
  1. PALBOCICLIB [Suspect]
     Active Substance: PALBOCICLIB
     Dosage: 75 MG, CYCLIC (1 TABLET ORALLY DAILY. 1 DAILY FOR 21 DAYS, 7 DAYS OFF)
     Route: 048

REACTIONS (2)
  - Cough [Unknown]
  - Dyspnoea [Unknown]
